FAERS Safety Report 24330818 (Version 1)
Quarter: 2024Q3

REPORT INFORMATION
  Report Type: Report from Study
  Country: CA (occurrence: CA)
  Receive Date: 20240918
  Receipt Date: 20240918
  Transmission Date: 20241016
  Serious: Yes (Other)
  Sender: TEVA
  Company Number: CA-TEVA-VS-3243265

PATIENT
  Age: 26 Year
  Sex: Female

DRUGS (1)
  1. AJOVY [Suspect]
     Active Substance: FREMANEZUMAB-VFRM
     Indication: Migraine prophylaxis
     Dosage: LAST DATE OF MY INJECTION WAS AUGUST 23RD
     Route: 058
     Dates: start: 20240723

REACTIONS (12)
  - Vaginal haemorrhage [Not Recovered/Not Resolved]
  - Nervousness [Unknown]
  - Acne [Unknown]
  - Alopecia [Unknown]
  - Anxiety [Unknown]
  - Asthenia [Unknown]
  - Dry skin [Unknown]
  - Blood iron decreased [Unknown]
  - Endometriosis [Unknown]
  - Sluggishness [Unknown]
  - Seborrhoea [Unknown]
  - Hormone level abnormal [Unknown]

NARRATIVE: CASE EVENT DATE: 20240101
